FAERS Safety Report 19217088 (Version 2)
Quarter: 2021Q2

REPORT INFORMATION
  Report Type: Spontaneous
  Country: DE (occurrence: DE)
  Receive Date: 20210505
  Receipt Date: 20210604
  Transmission Date: 20210717
  Serious: Yes (Other)
  Sender: FDA-Public Use
  Company Number: DE-TEVA-2021-DE-1897872

PATIENT
  Age: 82 Year
  Sex: Female

DRUGS (10)
  1. OXACEPAM?RATIOPHARM 10 MG TABLETTEN [Suspect]
     Active Substance: OXAZEPAM
     Indication: SLEEP DISORDER
     Route: 048
     Dates: start: 2016
  2. ISOPTIN [Concomitant]
     Active Substance: VERAPAMIL HYDROCHLORIDE
     Indication: HYPERTENSION
     Dosage: 240  DAILY; 1X240 RETARD STARTED FOR YEARS
  3. OCUVITE LUTEIN PLUS [Concomitant]
     Indication: MACULAR DEGENERATION
     Dosage: FOR TEN YEARS, ONCE DAILY
  4. OXACEPAM?RATIOPHARM 10 MG TABLETTEN [Suspect]
     Active Substance: OXAZEPAM
     Route: 048
     Dates: start: 2016
  5. VIGANTOL D3 [Concomitant]
     Indication: MOVEMENT DISORDER
     Dates: start: 20210101
  6. ISOPTIN [Concomitant]
     Active Substance: VERAPAMIL HYDROCHLORIDE
     Indication: ARRHYTHMIA
  7. KORALLENKALK [Concomitant]
     Indication: FRACTURE
     Dates: start: 20210101
  8. MAGNEROT [Concomitant]
     Active Substance: MAGNESIUM
     Indication: MUSCLE SPASMS
     Dosage: FOR YEARS
  9. GINKO ABZ [Concomitant]
     Indication: VERTIGO
     Dosage: 240 MILLIGRAM DAILY; STARTET FOR YEARS
  10. OXACEPAM?RATIOPHARM 10 MG TABLETTEN [Suspect]
     Active Substance: OXAZEPAM
     Dosage: 10 MILLIGRAM DAILY;
     Route: 048
     Dates: start: 1981, end: 2016

REACTIONS (3)
  - Therapeutic product effect decreased [Unknown]
  - Wrong technique in product usage process [Unknown]
  - Drug dependence [Not Recovered/Not Resolved]
